FAERS Safety Report 11288225 (Version 1)
Quarter: 2015Q3

REPORT INFORMATION
  Report Type: Spontaneous
  Country: US (occurrence: None)
  Receive Date: 20150720
  Receipt Date: 20150720
  Transmission Date: 20151125
  Serious: Yes (Life-Threatening)
  Sender: FDA-Public Use
  Company Number: None

PATIENT
  Age: 59 Year
  Sex: Male
  Weight: 72.6 kg

DRUGS (2)
  1. MEROPENEM. [Suspect]
     Active Substance: MEROPENEM
  2. MEROPENEM. [Suspect]
     Active Substance: MEROPENEM
     Indication: UPPER RESPIRATORY TRACT INFECTION
     Dates: start: 20120606, end: 20120607

REACTIONS (1)
  - Angioedema [None]

NARRATIVE: CASE EVENT DATE: 20120610
